FAERS Safety Report 24850085 (Version 1)
Quarter: 2025Q1

REPORT INFORMATION
  Report Type: Spontaneous
  Country: US (occurrence: US)
  Receive Date: 20250116
  Receipt Date: 20250116
  Transmission Date: 20250409
  Serious: No
  Sender: MYLAN
  Company Number: US-MYLANLABS-2025M1001147

PATIENT

DRUGS (1)
  1. EFFEXOR XR EXTENDED-RELEASE [Suspect]
     Active Substance: VENLAFAXINE HYDROCHLORIDE
     Indication: Product used for unknown indication
     Dosage: 150 MILLIGRAM, BID (1 CAPSULE BY MOUTH IN THE MORNING AND 1 CAPSULE IN THE EVENING)
     Route: 048

REACTIONS (2)
  - Prescribed overdose [Unknown]
  - Off label use [Unknown]
